FAERS Safety Report 12789418 (Version 1)
Quarter: 2016Q3

REPORT INFORMATION
  Report Type: Spontaneous
  Country: US (occurrence: US)
  Receive Date: 20160928
  Receipt Date: 20160928
  Transmission Date: 20161109
  Serious: No
  Sender: FDA-Public Use
  Company Number: US-JNJFOC-20160925423

PATIENT
  Age: 78 Year
  Sex: Female
  Weight: 46.27 kg

DRUGS (6)
  1. TELAPREVIR [Concomitant]
     Active Substance: TELAPREVIR
     Indication: SEIZURE
     Route: 065
  2. METOPROLOL. [Concomitant]
     Active Substance: METOPROLOL
     Indication: GASTRIC DISORDER
     Route: 065
  3. MYRBETRIQ [Concomitant]
     Active Substance: MIRABEGRON
     Indication: URINARY TRACT DISORDER
     Route: 065
  4. PEPCID AC ORIGINAL STRENGTH [Suspect]
     Active Substance: FAMOTIDINE
     Route: 048
  5. PEPCID AC ORIGINAL STRENGTH [Suspect]
     Active Substance: FAMOTIDINE
     Indication: DYSGEUSIA
     Route: 048
     Dates: start: 20160922
  6. XANAX [Concomitant]
     Active Substance: ALPRAZOLAM
     Indication: ANXIETY
     Route: 065

REACTIONS (6)
  - Product use issue [Not Recovered/Not Resolved]
  - Malaise [Not Recovered/Not Resolved]
  - Drug ineffective for unapproved indication [Unknown]
  - Feeling abnormal [Not Recovered/Not Resolved]
  - Chest pain [Not Recovered/Not Resolved]
  - Dysgeusia [Not Recovered/Not Resolved]

NARRATIVE: CASE EVENT DATE: 20160922
